FAERS Safety Report 21168327 (Version 2)
Quarter: 2022Q3

REPORT INFORMATION
  Report Type: Report from Study
  Country: US (occurrence: US)
  Receive Date: 20220803
  Receipt Date: 20220919
  Transmission Date: 20221027
  Serious: Yes (Other)
  Sender: FDA-Public Use
  Company Number: US-BRISTOL-MYERS SQUIBB COMPANY-2022-042986

PATIENT
  Age: 77 Year
  Sex: Male
  Weight: 72.57 kg

DRUGS (1)
  1. POMALYST [Suspect]
     Active Substance: POMALIDOMIDE
     Indication: Plasma cell myeloma
     Dosage: LOT EXPIRATION DATE: 31-OCT-2025?FREQUENCY: FOR 21 DAYS 7 DAYS OFF
     Route: 048

REACTIONS (2)
  - Heart rate decreased [Unknown]
  - Peripheral swelling [Unknown]
